FAERS Safety Report 25120593 (Version 1)
Quarter: 2025Q1

REPORT INFORMATION
  Report Type: Spontaneous
  Country: CN (occurrence: CN)
  Receive Date: 20250325
  Receipt Date: 20250325
  Transmission Date: 20250408
  Serious: Yes (Other)
  Sender: BEIGENE
  Company Number: CN-BEIGENE-BGN-2025-004320

PATIENT
  Age: 68 Year

DRUGS (1)
  1. TISLELIZUMAB [Suspect]
     Active Substance: TISLELIZUMAB
     Indication: Malignant neoplasm of renal pelvis

REACTIONS (13)
  - Ototoxicity [Unknown]
  - Renal failure [Unknown]
  - Immunodeficiency [Unknown]
  - Forearm fracture [Recovering/Resolving]
  - Pruritus [Unknown]
  - Skin exfoliation [Unknown]
  - Hypoacusis [Unknown]
  - Oropharyngeal pain [Unknown]
  - Upper respiratory tract infection [Unknown]
  - Psoriasis [Unknown]
  - Otitis externa [Unknown]
  - Cough [Unknown]
  - Rash [Unknown]
